FAERS Safety Report 10072964 (Version 1)
Quarter: 2014Q2

REPORT INFORMATION
  Report Type: Report from Study
  Country: US (occurrence: US)
  Receive Date: 20140411
  Receipt Date: 20140411
  Transmission Date: 20141212
  Serious: Yes (Hospitalization, Other)
  Sender: FDA-Public Use
  Company Number: US-JNJFOC-20140404785

PATIENT
  Age: 72 Year
  Sex: Female
  Weight: 79.83 kg

DRUGS (14)
  1. XARELTO [Suspect]
     Indication: CEREBROVASCULAR ACCIDENT PROPHYLAXIS
     Route: 048
     Dates: start: 201310, end: 20140305
  2. XARELTO [Suspect]
     Indication: ATRIAL FIBRILLATION
     Route: 048
     Dates: start: 201310, end: 20140305
  3. ASPIRIN [Suspect]
     Indication: PRODUCT USED FOR UNKNOWN INDICATION
     Route: 065
     Dates: start: 201403
  4. LOVENOX [Suspect]
     Indication: PRODUCT USED FOR UNKNOWN INDICATION
     Dosage: IN THE MORNING AND AT NIGHT
     Route: 058
     Dates: start: 201403
  5. COUMADIN [Suspect]
     Indication: HAEMATOMA
     Route: 065
     Dates: start: 201403
  6. AMIODARONE [Concomitant]
     Indication: CARDIAC PACEMAKER INSERTION
     Route: 065
     Dates: start: 20140311
  7. AMIODARONE [Concomitant]
     Indication: ATRIAL FLUTTER
     Route: 065
     Dates: start: 20140311
  8. AMIODARONE [Concomitant]
     Indication: ATRIAL FIBRILLATION
     Route: 065
     Dates: start: 20140311
  9. AMIODARONE [Concomitant]
     Indication: HEART RATE INCREASED
     Route: 065
     Dates: start: 20140311
  10. DILTIAZEM [Concomitant]
     Indication: CARDIAC PACEMAKER INSERTION
     Route: 048
  11. DILTIAZEM [Concomitant]
     Indication: ATRIAL FLUTTER
     Route: 048
  12. DILTIAZEM [Concomitant]
     Indication: ATRIAL FIBRILLATION
     Route: 048
  13. DILTIAZEM [Concomitant]
     Indication: HEART RATE INCREASED
     Route: 048
  14. LISINOPRIL [Concomitant]
     Indication: HYPERTENSION
     Route: 048
     Dates: start: 2012

REACTIONS (5)
  - Atrial fibrillation [Recovered/Resolved]
  - Loss of consciousness [Recovered/Resolved]
  - Heart rate increased [Recovered/Resolved]
  - Breast haematoma [Not Recovered/Not Resolved]
  - Skin discolouration [Not Recovered/Not Resolved]
